FAERS Safety Report 4264747-2 (Version None)
Quarter: 2004Q1

REPORT INFORMATION
  Report Type: 
  Country: None (occurrence: None)
  Receive Date: 20040102
  Receipt Date: 20031221
  Transmission Date: 20041129
  Serious: Yes (Other)
  Sender: FDA-Public Use
  Company Number: 2003126147

PATIENT
  Sex: Male
  Weight: 83.9154 kg

DRUGS (1)
  1. NEURONTIN [Suspect]
     Indication: ANGER
     Dosage: ORAL
     Route: 048
     Dates: start: 20000101, end: 20030101

REACTIONS (17)
  - ANGER [None]
  - DIARRHOEA [None]
  - DRUG DEPENDENCE [None]
  - DRUG WITHDRAWAL SYNDROME [None]
  - FAECES DISCOLOURED [None]
  - FEELING ABNORMAL [None]
  - HEART RATE ABNORMAL [None]
  - HOMICIDAL IDEATION [None]
  - INTENTIONAL SELF-INJURY [None]
  - MUSCLE SPASMS [None]
  - NAUSEA [None]
  - OESOPHAGEAL DISORDER [None]
  - PAIN [None]
  - PARAESTHESIA [None]
  - PHYSICAL ASSAULT [None]
  - SUICIDAL IDEATION [None]
  - VOMITING [None]
